FAERS Safety Report 4984674-2 (Version None)
Quarter: 2006Q2

REPORT INFORMATION
  Report Type: 
  Country: None (occurrence: None)
  Receive Date: 20060427
  Receipt Date: 20060119
  Transmission Date: 20061013
  Serious: Yes (Hospitalization, Other)
  Sender: FDA-Public Use
  Company Number: US-MERCK-0601USA02641

PATIENT
  Age: 66 Year
  Sex: Male
  Weight: 114 kg

DRUGS (3)
  1. VIOXX [Suspect]
     Route: 048
  2. ASPIRIN [Suspect]
     Route: 065
  3. COUMADIN [Suspect]
     Route: 065

REACTIONS (32)
  - ANAEMIA [None]
  - ANGINA PECTORIS [None]
  - ARTERIOSCLEROSIS [None]
  - ASTHENIA [None]
  - ATRIAL FIBRILLATION [None]
  - BLOOD GLUCOSE INCREASED [None]
  - CARDIAC DISORDER [None]
  - CARDIAC FAILURE CONGESTIVE [None]
  - CHEST DISCOMFORT [None]
  - CHEST X-RAY ABNORMAL [None]
  - CORONARY ARTERY DISEASE [None]
  - CORONARY ARTERY STENOSIS [None]
  - CORONARY OSTIAL STENOSIS [None]
  - DIABETES MELLITUS [None]
  - DIZZINESS [None]
  - DYSLIPIDAEMIA [None]
  - DYSPEPSIA [None]
  - DYSPNOEA [None]
  - EXOSTOSIS [None]
  - GASTROINTESTINAL HAEMORRHAGE [None]
  - GRANULOMATOUS LIVER DISEASE [None]
  - JOINT INJURY [None]
  - KERATOCONJUNCTIVITIS SICCA [None]
  - MITRAL VALVE INCOMPETENCE [None]
  - OBESITY [None]
  - ORTHOSTATIC HYPOTENSION [None]
  - OSTEOARTHRITIS [None]
  - PAIN IN EXTREMITY [None]
  - PLEURAL EFFUSION [None]
  - RHEUMATOID ARTHRITIS [None]
  - SPLENIC GRANULOMA [None]
  - TREATMENT NONCOMPLIANCE [None]
